FAERS Safety Report 7914791-6 (Version None)
Quarter: 2011Q4

REPORT INFORMATION
  Report Type: 
  Country: None (occurrence: None)
  Receive Date: 20111115
  Receipt Date: 20111107
  Transmission Date: 20120403
  Serious: Yes (Death, Hospitalization)
  Sender: FDA-Public Use
  Company Number: US-SANOFI-AVENTIS-2011SA074042

PATIENT
  Sex: Male

DRUGS (14)
  1. LASIX [Suspect]
     Dosage: DOSE:80 UNIT(S)
     Dates: start: 20110811, end: 20110824
  2. ATORVASTATIN CALCIUM [Concomitant]
  3. INVESTIGATIONAL DRUG [Suspect]
     Dates: start: 20081009, end: 20110728
  4. FOLIC ACID [Concomitant]
  5. ESOMEPRAZOLE MAGNESIUM [Concomitant]
  6. ASPIRIN [Concomitant]
  7. PREDNISONE TAB [Concomitant]
  8. FLAXSEED OIL [Concomitant]
  9. NEURONTIN [Concomitant]
  10. LOPRESSOR [Concomitant]
  11. INVESTIGATIONAL DRUG [Suspect]
     Dates: end: 20110824
  12. ALPRAZOLAM [Concomitant]
  13. METFORMIN HCL [Concomitant]
  14. LISINOPRIL [Concomitant]

REACTIONS (3)
  - PRESYNCOPE [None]
  - HYPOXIA [None]
  - HYPOTENSION [None]
